FAERS Safety Report 4752470-7 (Version None)
Quarter: 2005Q3

REPORT INFORMATION
  Report Type: 
  Country: None (occurrence: None)
  Receive Date: 20050825
  Receipt Date: 20050818
  Transmission Date: 20060218
  Serious: Yes (Other)
  Sender: FDA-Public Use
  Company Number: PHBS2005KR12052

PATIENT
  Age: 10 Year
  Sex: Female

DRUGS (2)
  1. CYCLOSPORINE [Suspect]
     Indication: GLOMERULONEPHRITIS PROLIFERATIVE
     Dosage: 75 MG, BID
  2. PREDNISONE TAB [Suspect]
     Dosage: 48 MG, QD

REACTIONS (9)
  - AUTOANTIBODY POSITIVE [None]
  - BASEDOW'S DISEASE [None]
  - BLOOD THYROID STIMULATING HORMONE DECREASED [None]
  - EXOPHTHALMOS [None]
  - GOITRE [None]
  - IMMUNOSUPPRESSION [None]
  - THYROGLOBULIN INCREASED [None]
  - THYROXINE FREE INCREASED [None]
  - TRI-IODOTHYRONINE INCREASED [None]
